FAERS Safety Report 12948612 (Version 2)
Quarter: 2016Q4

REPORT INFORMATION
  Report Type: Report from Study
  Country: US (occurrence: US)
  Receive Date: 20161116
  Receipt Date: 20161228
  Transmission Date: 20170207
  Serious: Yes (Death, Hospitalization, Other)
  Sender: FDA-Public Use
  Company Number: US-KADMON PHARMACEUTICALS, LLC-KAD201611-004052

PATIENT
  Age: 59 Year
  Sex: Male

DRUGS (5)
  1. VIEKIRA PAK [Suspect]
     Active Substance: DASABUVIR\OMBITASVIR\PARITAPREVIR\RITONAVIR
     Indication: HEPATITIS C
     Dosage: TABLET
     Route: 048
     Dates: start: 20161017, end: 20161106
  2. TACROLIMUS. [Concomitant]
     Active Substance: TACROLIMUS
     Indication: LIVER TRANSPLANT
  3. RIBAVIRIN 200 MG TABLETS [Suspect]
     Active Substance: RIBAVIRIN
     Indication: HEPATITIS C
     Route: 048
     Dates: start: 20161007, end: 20161106
  4. TACROLIMUS. [Concomitant]
     Active Substance: TACROLIMUS
     Dates: start: 201206, end: 20161029
  5. LOSARTAN. [Concomitant]
     Active Substance: LOSARTAN
     Dates: start: 20160607

REACTIONS (5)
  - Hyperkalaemia [Unknown]
  - Acute kidney injury [Unknown]
  - Hepatic failure [Unknown]
  - Dehydration [Unknown]
  - Cardiac arrest [Fatal]

NARRATIVE: CASE EVENT DATE: 20161104
